FAERS Safety Report 4399951-6 (Version None)
Quarter: 2004Q3

REPORT INFORMATION
  Report Type: 
  Country: None (occurrence: None)
  Receive Date: 20040714
  Receipt Date: 20040628
  Transmission Date: 20050211
  Serious: Yes (Death, Hospitalization)
  Sender: FDA-Public Use
  Company Number: US_0404102395

PATIENT
  Age: 76 Year
  Sex: Male
  Weight: 84 kg

DRUGS (7)
  1. DROTRECOGIN ALFA (ACTIVATED)) [Suspect]
     Indication: SEPSIS
     Dosage: 24 UG/KG/KR
     Dates: start: 20040417, end: 20040417
  2. ANTIBIOTIC [Concomitant]
  3. ANTACID DRUG [Concomitant]
  4. TPN [Concomitant]
  5. VASOPRESSOR [Concomitant]
  6. SEDATIVES [Concomitant]
  7. ENOXAPARIN [Concomitant]

REACTIONS (2)
  - MUCOSAL HAEMORRHAGE [None]
  - MULTI-ORGAN FAILURE [None]
